FAERS Safety Report 10744612 (Version 1)
Quarter: 2015Q1

REPORT INFORMATION
  Report Type: Spontaneous
  Country: US (occurrence: US)
  Receive Date: 20150128
  Receipt Date: 20150128
  Transmission Date: 20150721
  Serious: Yes (Hospitalization)
  Sender: FDA-Public Use
  Company Number: US-BEH-2015048040

PATIENT
  Age: 66 Year
  Sex: Female
  Weight: 85 kg

DRUGS (25)
  1. PRIVIGEN [Suspect]
     Active Substance: HUMAN IMMUNOGLOBULIN G
     Indication: IMMUNODEFICIENCY COMMON VARIABLE
     Route: 042
     Dates: start: 20150108
  2. DIPHENHYDRAMINE [Concomitant]
     Active Substance: DIPHENHYDRAMINE
  3. SODIUM CHLORIDE. [Concomitant]
     Active Substance: SODIUM CHLORIDE
  4. OXYCODONE [Concomitant]
     Active Substance: OXYCODONE
  5. METFORMIN [Concomitant]
     Active Substance: METFORMIN HYDROCHLORIDE
  6. ALLEGRA [Concomitant]
     Active Substance: FEXOFENADINE HYDROCHLORIDE
  7. KLOR-CON [Concomitant]
     Active Substance: POTASSIUM CHLORIDE
  8. ADCIRCA [Concomitant]
     Active Substance: TADALAFIL
  9. PRIVIGEN [Suspect]
     Active Substance: HUMAN IMMUNOGLOBULIN G
     Indication: HYPOGAMMAGLOBULINAEMIA
     Route: 042
     Dates: start: 20150108
  10. EPIPEN [Concomitant]
     Active Substance: EPINEPHRINE
  11. MEDROL [Concomitant]
     Active Substance: METHYLPREDNISOLONE
  12. LIDOCAINE. [Concomitant]
     Active Substance: LIDOCAINE
  13. COUMADIN [Concomitant]
     Active Substance: WARFARIN SODIUM
  14. NEXIUM [Concomitant]
     Active Substance: ESOMEPRAZOLE MAGNESIUM
  15. BUTRANS [Concomitant]
     Active Substance: BUPRENORPHINE
  16. PREMARIN [Concomitant]
     Active Substance: ESTROGENS, CONJUGATED
  17. PROPAFENONE. [Concomitant]
     Active Substance: PROPAFENONE
  18. TRIAMTERENE AND HYDROCHLOROTHIAZIDE [Concomitant]
     Active Substance: HYDROCHLOROTHIAZIDE\TRIAMTERENE
  19. HEPARIN [Concomitant]
     Active Substance: HEPARIN SODIUM
  20. AMBIEN [Concomitant]
     Active Substance: ZOLPIDEM TARTRATE
  21. PRIVIGEN [Suspect]
     Active Substance: HUMAN IMMUNOGLOBULIN G
     Indication: AUTOIMMUNE DISORDER
     Route: 042
     Dates: start: 20150108
  22. TOPROL XL [Concomitant]
     Active Substance: METOPROLOL SUCCINATE
  23. LEVOXYL [Concomitant]
     Active Substance: LEVOTHYROXINE SODIUM
  24. ACETAMINOPHEN. [Concomitant]
     Active Substance: ACETAMINOPHEN
  25. CYMBALTA [Concomitant]
     Active Substance: DULOXETINE HYDROCHLORIDE

REACTIONS (2)
  - Abnormal clotting factor [Unknown]
  - Urinary tract infection [Unknown]

NARRATIVE: CASE EVENT DATE: 20150111
